FAERS Safety Report 5619611-0 (Version None)
Quarter: 2008Q1

REPORT INFORMATION
  Report Type: 
  Country: None (occurrence: None)
  Receive Date: 20080208
  Receipt Date: 20071112
  Transmission Date: 20080703
  Serious: No
  Sender: FDA-Public Use
  Company Number: US-BAYER-US-2007-043140

PATIENT
  Age: 41 Year
  Sex: Female
  Weight: 72 kg

DRUGS (4)
  1. MIRENA [Suspect]
     Indication: CONTRACEPTION
     Dates: start: 20070601
  2. MIRENA [Suspect]
  3. TAPASOL [Concomitant]
     Indication: THYROID DISORDER
  4. ABEVPRO [Concomitant]
     Indication: BLOOD PRESSURE MANAGEMENT

REACTIONS (2)
  - HYPOMENORRHOEA [None]
  - IUCD COMPLICATION [None]
